FAERS Safety Report 9912011 (Version 2)
Quarter: 2014Q1

REPORT INFORMATION
  Report Type: Spontaneous
  Country: US (occurrence: US)
  Receive Date: 20140219
  Receipt Date: 20140219
  Transmission Date: 20141002
  Serious: No
  Sender: FDA-Public Use
  Company Number: US-MYLANLABS-PF-2013275228

PATIENT
  Age: 57 Year
  Sex: Female

DRUGS (8)
  1. ZOLOFT [Suspect]
     Dosage: UNK
  2. TETRACYCLINE HCL [Suspect]
     Dosage: UNK
  3. MORPHINE SULFATE [Suspect]
     Dosage: UNK
  4. EPIPEN [Suspect]
     Dosage: UNK
  5. PAXIL [Suspect]
     Dosage: UNK
  6. ZOFRAN [Suspect]
     Dosage: UNK
  7. VITAMIN B [Suspect]
     Dosage: UNK
  8. TETANUS VACCINE [Suspect]
     Dosage: UNK

REACTIONS (1)
  - Drug hypersensitivity [Unknown]
